FAERS Safety Report 7128910-5 (Version None)
Quarter: 2010Q4

REPORT INFORMATION
  Report Type: 
  Country: None (occurrence: None)
  Receive Date: 20101130
  Receipt Date: 20101122
  Transmission Date: 20110411
  Serious: Yes (Other)
  Sender: FDA-Public Use
  Company Number: A0894984A

PATIENT
  Age: 33 Year
  Sex: Female

DRUGS (9)
  1. LAMOTRIGINE [Suspect]
     Indication: PRODUCT USED FOR UNKNOWN INDICATION
     Dosage: 200MG PER DAY
     Route: 048
     Dates: start: 20100101
  2. LEVOTHYROXINE SODIUM [Concomitant]
     Dosage: 150MCG PER DAY
     Route: 065
  3. ORTHO TRI-CYCLEN [Concomitant]
     Route: 065
  4. TRAZODONE [Concomitant]
     Dosage: 200MG AT NIGHT
     Route: 065
  5. DITROPAN XL [Concomitant]
     Dosage: 10MG PER DAY
     Route: 065
  6. NAPROXEN [Concomitant]
     Dosage: 250MG THREE TIMES PER DAY
     Route: 065
  7. CLINDOXYL [Concomitant]
     Route: 065
  8. BETAMETHASONE VALERATE [Concomitant]
     Route: 065
  9. TRETINOIN [Concomitant]
     Route: 065

REACTIONS (1)
  - MACROCYTOSIS [None]
